FAERS Safety Report 8522741-7 (Version None)
Quarter: 2012Q3

REPORT INFORMATION
  Report Type: 
  Country: None (occurrence: None)
  Receive Date: 20120719
  Receipt Date: 20120712
  Transmission Date: 20120928
  Serious: Yes (Other)
  Sender: FDA-Public Use
  Company Number: US-FRI-1000037042

PATIENT
  Age: 26 Year
  Sex: Female

DRUGS (4)
  1. BIRTH CONTROL PILLS NOS [Concomitant]
     Indication: CONTRACEPTION
  2. VIIBRYD [Suspect]
     Dosage: 40 MG
     Route: 048
     Dates: start: 20120101, end: 20120601
  3. VIIBRYD [Suspect]
     Dosage: 20 MG
     Route: 048
     Dates: start: 20120101, end: 20120101
  4. VIIBRYD [Suspect]
     Indication: DEPRESSION
     Dosage: 10 MG
     Route: 048
     Dates: start: 20120101, end: 20120101

REACTIONS (3)
  - SUICIDAL IDEATION [None]
  - HYPERHIDROSIS [None]
  - DIARRHOEA [None]
